FAERS Safety Report 4537228-6 (Version None)
Quarter: 2004Q4

REPORT INFORMATION
  Report Type: 
  Country: None (occurrence: None)
  Receive Date: 20041223
  Receipt Date: 20040902
  Transmission Date: 20050328
  Serious: Yes (Other)
  Sender: FDA-Public Use
  Company Number: PHBS2004JP11804

PATIENT
  Age: 72 Year
  Sex: Female

DRUGS (1)
  1. GLEEVEC [Suspect]
     Indication: GASTROINTESTINAL STROMAL TUMOUR
     Dosage: 400 MG/D
     Route: 048
     Dates: start: 20040616

REACTIONS (4)
  - BLOOD BILIRUBIN INCREASED [None]
  - CHOLANGITIS [None]
  - MEMORY IMPAIRMENT [None]
  - WHITE BLOOD CELL COUNT DECREASED [None]
